FAERS Safety Report 19900650 (Version 1)
Quarter: 2021Q3

REPORT INFORMATION
  Report Type: Spontaneous
  Country: US (occurrence: US)
  Receive Date: 20210930
  Receipt Date: 20210930
  Transmission Date: 20211014
  Serious: Yes (Hospitalization, Other)
  Sender: FDA-Public Use
  Company Number: US-GLAXOSMITHKLINE-US2021GSK201979

PATIENT
  Age: 64 Year
  Sex: Female

DRUGS (21)
  1. AZITHROMYCIN ANHYDROUS. [Suspect]
     Active Substance: AZITHROMYCIN ANHYDROUS
     Indication: BABESIOSIS
     Dosage: 1 G DAILY
     Route: 048
     Dates: start: 20190718, end: 20191013
  2. VORICONAZOLE. [Concomitant]
     Active Substance: VORICONAZOLE
     Indication: ANTIBIOTIC PROPHYLAXIS
     Dosage: UNK
     Dates: start: 20191104
  3. CLINDAMYCIN. [Concomitant]
     Active Substance: CLINDAMYCIN
     Indication: BABESIOSIS
     Dosage: 600 MG, TID (EVERY 8 HOURS)
     Route: 042
     Dates: start: 20190721
  4. ATOVAQUONE + PROGUANIL [Concomitant]
     Indication: BABESIOSIS
     Dosage: 1 DF (1 TABLET DAILY)
  5. ACYCLOVIR. [Concomitant]
     Active Substance: ACYCLOVIR
     Indication: ANTIBIOTIC PROPHYLAXIS
     Dosage: UNK
     Dates: start: 20191104
  6. VINCRISTINE [Concomitant]
     Active Substance: VINCRISTINE
     Indication: ACUTE LYMPHOCYTIC LEUKAEMIA
  7. FLUDARABINE [Concomitant]
     Active Substance: FLUDARABINE PHOSPHATE
     Indication: ALLOGENIC STEM CELL TRANSPLANTATION
     Dosage: UNK
  8. TRIMETHOPRIM + SULFAMETHOXAZOLE [Suspect]
     Active Substance: SULFAMETHOXAZOLE\TRIMETHOPRIM
     Indication: ANTIBIOTIC PROPHYLAXIS
     Dosage: UNK
     Dates: start: 20191104
  9. RITUXIMAB. [Concomitant]
     Active Substance: RITUXIMAB
     Indication: CD20 ANTIGEN POSITIVE
     Dosage: UNK
  10. RITUXIMAB. [Concomitant]
     Active Substance: RITUXIMAB
     Indication: ACUTE LYMPHOCYTIC LEUKAEMIA
  11. BLINATUMOMAB [Concomitant]
     Active Substance: BLINATUMOMAB
     Indication: ACUTE LYMPHOCYTIC LEUKAEMIA
  12. CYCLOPHOSPHAMIDE. [Concomitant]
     Active Substance: CYCLOPHOSPHAMIDE
     Indication: ACUTE LYMPHOCYTIC LEUKAEMIA
  13. VINCRISTINE [Concomitant]
     Active Substance: VINCRISTINE
     Indication: CD20 ANTIGEN POSITIVE
     Dosage: UNK
     Dates: start: 20190409
  14. DEXAMETHASONE. [Concomitant]
     Active Substance: DEXAMETHASONE
     Indication: ACUTE LYMPHOCYTIC LEUKAEMIA
  15. MYCOPHENOLATE MOFETIL. [Concomitant]
     Active Substance: MYCOPHENOLATE MOFETIL
     Indication: PROPHYLAXIS AGAINST GRAFT VERSUS HOST DISEASE
     Dosage: UNK
  16. ATOVAQUONE. [Suspect]
     Active Substance: ATOVAQUONE
     Indication: ANTIFUNGAL PROPHYLAXIS
     Dosage: 1500 MG DAILY
     Dates: start: 201809
  17. CYCLOPHOSPHAMIDE. [Concomitant]
     Active Substance: CYCLOPHOSPHAMIDE
     Indication: CD20 ANTIGEN POSITIVE
     Dosage: UNK
     Dates: start: 20190409
  18. DEXAMETHASONE. [Concomitant]
     Active Substance: DEXAMETHASONE
     Indication: CD20 ANTIGEN POSITIVE
     Dosage: UNK
     Dates: start: 20190409
  19. TACROLIMUS. [Concomitant]
     Active Substance: TACROLIMUS
     Indication: PROPHYLAXIS AGAINST GRAFT VERSUS HOST DISEASE
     Dosage: UNK
  20. ATOVAQUONE. [Suspect]
     Active Substance: ATOVAQUONE
     Indication: BABESIOSIS
     Dosage: 750 MG, BID
     Dates: start: 20190718, end: 20191013
  21. BLINATUMOMAB [Concomitant]
     Active Substance: BLINATUMOMAB
     Indication: CD20 ANTIGEN POSITIVE
     Dosage: UNK
     Dates: start: 20181212

REACTIONS (4)
  - Nephropathy toxic [Unknown]
  - Pathogen resistance [Unknown]
  - Drug resistance [Unknown]
  - Acute kidney injury [Unknown]
